FAERS Safety Report 8805235 (Version 1)
Quarter: 2012Q4

REPORT INFORMATION
  Report Type: Spontaneous
  Country: US (occurrence: None)
  Receive Date: 20120918
  Receipt Date: 20120918
  Transmission Date: 20130627
  Serious: No
  Sender: FDA-Public Use
  Company Number: None

PATIENT
  Age: 72 None
  Sex: Male
  Weight: 69.9 kg

DRUGS (1)
  1. DABIGATRAN [Suspect]
     Indication: ATRIAL FIBRILLATION
     Route: 048
     Dates: start: 20110523, end: 20120419

REACTIONS (5)
  - Abdominal distension [None]
  - Epistaxis [None]
  - Haematochezia [None]
  - Gastric haemorrhage [None]
  - Ill-defined disorder [None]
